FAERS Safety Report 10074179 (Version 2)
Quarter: 2014Q2

REPORT INFORMATION
  Report Type: Spontaneous
  Country: US (occurrence: US)
  Receive Date: 20140413
  Receipt Date: 20140423
  Transmission Date: 20141212
  Serious: No
  Sender: FDA-Public Use
  Company Number: US-009507513-1404USA006433

PATIENT
  Age: 30 Year
  Sex: Female
  Weight: 53.61 kg

DRUGS (1)
  1. IMPLANON [Suspect]
     Indication: CONTRACEPTION
     Dosage: UNK; INSERTED IN LEFT ARM
     Route: 059
     Dates: start: 20140317

REACTIONS (1)
  - Menstruation irregular [Unknown]
